FAERS Safety Report 8469305-1 (Version None)
Quarter: 2012Q2

REPORT INFORMATION
  Report Type: 
  Country: None (occurrence: None)
  Receive Date: 20120620
  Receipt Date: 20120604
  Transmission Date: 20120825
  Serious: Yes (Hospitalization, Other)
  Sender: FDA-Public Use
  Company Number: FK201201506

PATIENT
  Age: 39 Year
  Sex: Male

DRUGS (1)
  1. AMIODARONE HCL [Suspect]
     Indication: VENTRICULAR TACHYCARDIA
     Dosage: 600 MG, DAILY

REACTIONS (4)
  - TORSADE DE POINTES [None]
  - HYPOTHYROIDISM [None]
  - CORNEAL DEPOSITS [None]
  - ACCIDENTAL OVERDOSE [None]
